FAERS Safety Report 5925418-7 (Version None)
Quarter: 2008Q4

REPORT INFORMATION
  Report Type: 
  Country: None (occurrence: None)
  Receive Date: 20081021
  Receipt Date: 20081014
  Transmission Date: 20090506
  Serious: Yes (Death)
  Sender: FDA-Public Use
  Company Number: US-TEVA-178727USA

PATIENT
  Age: 49 Year
  Sex: Male

DRUGS (2)
  1. COPAXONE [Suspect]
     Indication: MULTIPLE SCLEROSIS
     Route: 058
  2. INTERFERON BETA [Suspect]
     Indication: MULTIPLE SCLEROSIS
     Dates: end: 20030101

REACTIONS (1)
  - PROGRESSIVE MULTIPLE SCLEROSIS [None]
